APPROVED DRUG PRODUCT: IRBESARTAN AND HYDROCHLOROTHIAZIDE
Active Ingredient: HYDROCHLOROTHIAZIDE; IRBESARTAN
Strength: 12.5MG;300MG
Dosage Form/Route: TABLET;ORAL
Application: A090351 | Product #002 | TE Code: AB
Applicant: HIKMA PHARMACEUTICALS USA INC
Approved: Oct 15, 2012 | RLD: No | RS: No | Type: RX